FAERS Safety Report 8814420 (Version 2)
Quarter: 2012Q4

REPORT INFORMATION
  Report Type: 
  Country: GB (occurrence: GB)
  Receive Date: 20120928
  Receipt Date: 20121005
  Transmission Date: 20130627
  Serious: Yes (Other)
  Sender: FDA-Public Use
  Company Number: PHFR2012GB005072

PATIENT
  Age: 69 Year
  Sex: Male

DRUGS (1)
  1. VOLTAROL [Suspect]
     Dosage: 225 mg, (75 mg at operation+50 mg one hour later+50 mg next morning+50 mg in afternoon)

REACTIONS (12)
  - Type 2 diabetes mellitus [Unknown]
  - Hypersensitivity [Unknown]
  - Anal haemorrhage [Unknown]
  - Cognitive disorder [Unknown]
  - Pain [Unknown]
  - Malaise [Unknown]
  - Asthenia [Unknown]
  - Parosmia [Unknown]
  - Dysgeusia [Unknown]
  - Abdominal pain upper [Unknown]
  - Chest pain [Unknown]
  - Overdose [Unknown]
